FAERS Safety Report 8882331 (Version 2)
Quarter: 2012Q4

REPORT INFORMATION
  Report Type: 
  Country: JP (occurrence: JP)
  Receive Date: 20121102
  Receipt Date: 20121112
  Transmission Date: 20130627
  Serious: Yes (Death)
  Sender: FDA-Public Use
  Company Number: JP-ROCHE-1151531

PATIENT
  Sex: Female

DRUGS (4)
  1. XOLAIR [Suspect]
     Indication: ASTHMA
     Dosage: 24/Nov/2010: 5th shot
     Route: 058
     Dates: start: 20100804, end: 20101124
  2. ADOAIR [Concomitant]
     Route: 065
     Dates: start: 20100204
  3. SINGULAIR [Concomitant]
     Route: 065
     Dates: start: 20100204
  4. THEOPHYLLINE [Concomitant]
     Route: 065
     Dates: start: 20100204

REACTIONS (1)
  - Pneumonia [Fatal]
